FAERS Safety Report 6746345-1 (Version None)
Quarter: 2010Q2

REPORT INFORMATION
  Report Type: 
  Country: None (occurrence: None)
  Receive Date: 20100528
  Receipt Date: 20100517
  Transmission Date: 20101027
  Serious: Yes (Hospitalization)
  Sender: FDA-Public Use
  Company Number: FR-PFIZER INC-2010047835

PATIENT
  Age: 63 Year
  Sex: Male

DRUGS (6)
  1. ATARAX [Suspect]
     Dosage: UNK
     Route: 048
  2. TELFAST [Suspect]
     Dosage: UNK
     Route: 048
  3. LANSOPRAZOLE [Suspect]
     Dosage: UNK
     Route: 048
  4. AUGMENTIN '125' [Concomitant]
     Dosage: UNK
     Route: 048
  5. IBUPROFENE [Concomitant]
     Dosage: UNK
     Route: 048
  6. MIZOLLEN [Concomitant]
     Dosage: 10 MG, UNK
     Route: 048
     Dates: start: 20090801, end: 20090801

REACTIONS (3)
  - RASH [None]
  - RASH MACULO-PAPULAR [None]
  - TOXIC SKIN ERUPTION [None]
